FAERS Safety Report 12511561 (Version 2)
Quarter: 2016Q3

REPORT INFORMATION
  Report Type: Spontaneous
  Country: IT (occurrence: IT)
  Receive Date: 20160629
  Receipt Date: 20160725
  Transmission Date: 20161109
  Serious: Yes (Hospitalization)
  Sender: FDA-Public Use
  Company Number: IT-ROCHE-1784122

PATIENT
  Age: 60 Year
  Sex: Female

DRUGS (6)
  1. TORVAST [Concomitant]
     Active Substance: ATORVASTATIN
     Route: 048
  2. DIAZEPAM. [Suspect]
     Active Substance: DIAZEPAM
     Indication: PRODUCT USED FOR UNKNOWN INDICATION
     Route: 048
     Dates: start: 20150101, end: 20160504
  3. EFIENT [Concomitant]
     Active Substance: PRASUGREL HYDROCHLORIDE
     Route: 048
  4. PANTOPRAZOLE [Concomitant]
     Active Substance: PANTOPRAZOLE SODIUM
     Route: 048
  5. ASPIRIN. [Concomitant]
     Active Substance: ASPIRIN
     Route: 048
  6. LUVION (ITALY) [Concomitant]
     Route: 048

REACTIONS (6)
  - Fracture [Recovering/Resolving]
  - Injury [Recovering/Resolving]
  - Confusional state [Recovering/Resolving]
  - Drug abuse [Unknown]
  - Fall [Unknown]
  - Headache [Recovering/Resolving]

NARRATIVE: CASE EVENT DATE: 20160504
